FAERS Safety Report 5614244-4 (Version None)
Quarter: 2008Q1

REPORT INFORMATION
  Report Type: 
  Country: None (occurrence: None)
  Receive Date: 20080205
  Receipt Date: 20080124
  Transmission Date: 20080703
  Serious: Yes (Other)
  Sender: FDA-Public Use
  Company Number: DE-PFIZER INC-2007078148

PATIENT
  Sex: Female

DRUGS (1)
  1. XALATAN [Suspect]
     Indication: GLAUCOMA
     Route: 047

REACTIONS (4)
  - CHEST DISCOMFORT [None]
  - COUGH [None]
  - INTRAOCULAR PRESSURE INCREASED [None]
  - MUSCULOSKELETAL CHEST PAIN [None]
